FAERS Safety Report 5534630-0 (Version None)
Quarter: 2007Q4

REPORT INFORMATION
  Report Type: 
  Country: None (occurrence: None)
  Receive Date: 20071205
  Receipt Date: 20071127
  Transmission Date: 20080405
  Serious: Yes (Other)
  Sender: FDA-Public Use
  Company Number: US-ASTRAZENECA-2007UW27140

PATIENT
  Age: 65 Year
  Sex: Female
  Weight: 59 kg

DRUGS (1)
  1. CRESTOR [Suspect]
     Indication: BLOOD CHOLESTEROL INCREASED
     Route: 048

REACTIONS (6)
  - BLOOD CREATININE INCREASED [None]
  - DIZZINESS [None]
  - MUSCULAR WEAKNESS [None]
  - RENAL ARTERY OCCLUSION [None]
  - RENAL DISORDER [None]
  - THINKING ABNORMAL [None]
